FAERS Safety Report 20542470 (Version 3)
Quarter: 2022Q2

REPORT INFORMATION
  Report Type: Spontaneous
  Country: JP (occurrence: JP)
  Receive Date: 20220302
  Receipt Date: 20220425
  Transmission Date: 20220720
  Serious: Yes (Hospitalization, Other)
  Sender: FDA-Public Use
  Company Number: JP-002147023-NVSJ2022JP003454

PATIENT

DRUGS (6)
  1. RUXOLITINIB [Suspect]
     Active Substance: RUXOLITINIB
     Indication: Primary myelofibrosis
     Dosage: 10 MG, BID
     Route: 048
  2. RUXOLITINIB [Suspect]
     Active Substance: RUXOLITINIB
     Dosage: 15 MG, BID
     Route: 048
  3. RUXOLITINIB [Suspect]
     Active Substance: RUXOLITINIB
     Dosage: 20 MG, BID
     Route: 048
  4. RUXOLITINIB [Suspect]
     Active Substance: RUXOLITINIB
     Dosage: 15 MG, BID
     Route: 048
  5. RUXOLITINIB [Suspect]
     Active Substance: RUXOLITINIB
     Dosage: 10 MG, BID
     Route: 048
  6. AMPICILLIN AND SULBACTAM [Concomitant]
     Active Substance: AMPICILLIN SODIUM\SULBACTAM SODIUM
     Indication: Product used for unknown indication
     Dosage: UNK
     Route: 065

REACTIONS (14)
  - Generalised oedema [Unknown]
  - Anaemia [Unknown]
  - Blood pressure decreased [Unknown]
  - Cardiomegaly [Unknown]
  - Therapeutic product effect incomplete [Recovering/Resolving]
  - Myelofibrosis [Unknown]
  - Disease recurrence [Unknown]
  - Pleural effusion [Unknown]
  - Asthenia [Unknown]
  - Pulmonary congestion [Unknown]
  - Rectal ulcer [Unknown]
  - White blood cell count increased [Unknown]
  - Coagulation test abnormal [Unknown]
  - Small intestinal ulcer haemorrhage [Unknown]
